FAERS Safety Report 24732299 (Version 2)
Quarter: 2025Q2

REPORT INFORMATION
  Report Type: Spontaneous
  Country: JP (occurrence: JP)
  Receive Date: 20241213
  Receipt Date: 20250404
  Transmission Date: 20250717
  Serious: Yes (Other)
  Sender: BRISTOL MYERS SQUIBB
  Company Number: JP-BRISTOL-MYERS SQUIBB COMPANY-2024-193167

PATIENT
  Age: 57 Year
  Sex: Male

DRUGS (3)
  1. REBLOZYL [Suspect]
     Active Substance: LUSPATERCEPT-AAMT
     Indication: Myelodysplastic syndrome
  2. REBLOZYL [Suspect]
     Active Substance: LUSPATERCEPT-AAMT
  3. REBLOZYL [Suspect]
     Active Substance: LUSPATERCEPT-AAMT

REACTIONS (2)
  - Drug ineffective [Recovering/Resolving]
  - Aplasia pure red cell [Recovered/Resolved]
